FAERS Safety Report 17887825 (Version 2)
Quarter: 2021Q2

REPORT INFORMATION
  Report Type: Spontaneous
  Country: US (occurrence: US)
  Receive Date: 20200612
  Receipt Date: 20210430
  Transmission Date: 20210717
  Serious: Yes (Death, Other)
  Sender: FDA-Public Use
  Company Number: US-SA-2020SA150688

PATIENT
  Age: 63 Year
  Sex: Female

DRUGS (1)
  1. ZANTAC [Suspect]
     Active Substance: RANITIDINE HYDROCHLORIDE
     Indication: DYSPEPSIA
     Dosage: 150 MG, QD
     Dates: start: 200301, end: 201907

REACTIONS (4)
  - Gastrointestinal carcinoma [Fatal]
  - Ovarian cancer stage IV [Unknown]
  - Gastrointestinal carcinoma [Unknown]
  - Small intestine carcinoma stage IV [Unknown]

NARRATIVE: CASE EVENT DATE: 20190601
